FAERS Safety Report 7323508-8 (Version None)
Quarter: 2011Q1

REPORT INFORMATION
  Report Type: 
  Country: None (occurrence: None)
  Receive Date: 20110301
  Receipt Date: 20110217
  Transmission Date: 20110831
  Serious: Yes (Hospitalization)
  Sender: FDA-Public Use
  Company Number: IT-SANOFI-AVENTIS-F01200601692

PATIENT
  Age: 75 Year
  Sex: Male

DRUGS (3)
  1. OXALIPLATIN [Suspect]
     Indication: COLORECTAL CANCER
     Route: 042
     Dates: start: 20060703, end: 20060703
  2. CAPECITABINE [Suspect]
     Indication: COLORECTAL CANCER
     Dosage: DOSE TEXT: 3450 MG DAILY FOR 14 DAYS EACH MONTH
     Route: 048
     Dates: start: 20060703, end: 20060706
  3. BEVACIZUMAB [Suspect]
     Indication: COLORECTAL CANCER
     Dosage: DOSE TEXT: 300 MG EVERY 14 DAYS
     Route: 042
     Dates: start: 20060703, end: 20060703

REACTIONS (2)
  - ANGINA PECTORIS [None]
  - ACUTE MYOCARDIAL INFARCTION [None]
